FAERS Safety Report 7943921-5 (Version None)
Quarter: 2011Q4

REPORT INFORMATION
  Report Type: 
  Country: None (occurrence: None)
  Receive Date: 20111128
  Receipt Date: 20111118
  Transmission Date: 20120403
  Serious: Yes (Other)
  Sender: FDA-Public Use
  Company Number: CN-ASTRAZENECA-2011SE70306

PATIENT
  Sex: Female

DRUGS (3)
  1. FENTANYL-100 [Suspect]
     Indication: ANAESTHESIA
     Route: 042
  2. PROPOFOL [Suspect]
     Indication: ANAESTHESIA
     Dosage: 2- 2.5 MG/KG
     Route: 042
  3. PROPOFOL [Suspect]
     Route: 042

REACTIONS (2)
  - MUSCLE SPASMS [None]
  - OXYGEN SATURATION DECREASED [None]
